FAERS Safety Report 4492061-9 (Version None)
Quarter: 2004Q4

REPORT INFORMATION
  Report Type: 
  Country: None (occurrence: None)
  Receive Date: 20041101
  Receipt Date: 20041020
  Transmission Date: 20050328
  Serious: Yes (Other)
  Sender: FDA-Public Use
  Company Number: HQWYE007622OCT04

PATIENT
  Age: 36 Year
  Sex: Male

DRUGS (5)
  1. PANTOZOL(PANTOPRAZOLE) [Suspect]
     Indication: GASTROOESOPHAGEAL REFLUX DISEASE
     Dosage: 40 MG 1X PER 1 DAY
  2. DOXEPIN (DOXEPIN) [Suspect]
     Dosage: SEE IMAGE
  3. QUETIAPINE (QUETIAPINE,) [Suspect]
     Dosage: SEE IMAGE
  4. LORAZEPAM [Concomitant]
  5. OFLOXACIN [Concomitant]

REACTIONS (7)
  - AGITATION [None]
  - ANTIPSYCHOTIC DRUG LEVEL INCREASED [None]
  - DRUG EFFECT DECREASED [None]
  - DRUG INTERACTION [None]
  - GASTROINTESTINAL DISORDER [None]
  - REFLUX OESOPHAGITIS [None]
  - RESTLESSNESS [None]
